FAERS Safety Report 9146584 (Version 1)
Quarter: 2013Q1

REPORT INFORMATION
  Report Type: Report from Study
  Country: DK (occurrence: DE)
  Receive Date: 20130307
  Receipt Date: 20130307
  Transmission Date: 20140127
  Serious: Yes (Hospitalization)
  Sender: FDA-Public Use
  Company Number: DE-FRI-1000043124

PATIENT
  Sex: Female

DRUGS (2)
  1. CITALOPRAM [Suspect]
     Dosage: 40 MG
     Route: 048
     Dates: end: 20121106
  2. MIRTAZAPINE [Interacting]
     Dosage: 30 MG
     Route: 048
     Dates: end: 20121106

REACTIONS (5)
  - Hypokalaemia [Recovered/Resolved]
  - Blood sodium decreased [Recovered/Resolved]
  - Potentiating drug interaction [Recovered/Resolved]
  - Bundle branch block right [Recovered/Resolved]
  - Electrocardiogram QT prolonged [Recovered/Resolved]
